FAERS Safety Report 13417753 (Version 3)
Quarter: 2017Q2

REPORT INFORMATION
  Report Type: Spontaneous
  Country: PT (occurrence: FR)
  Receive Date: 20170407
  Receipt Date: 20170602
  Transmission Date: 20170830
  Serious: Yes (Hospitalization)
  Sender: FDA-Public Use
  Company Number: PT-SUNOVION-2017SUN001400

PATIENT

DRUGS (11)
  1. ZEBINIX [Suspect]
     Active Substance: ESLICARBAZEPINE ACETATE
     Dosage: 800 MG, DAILY
     Route: 048
     Dates: start: 2017, end: 20170208
  2. LIPANTHYL [Concomitant]
     Active Substance: FENOFIBRATE
     Dosage: UNK
  3. INIPOMP [Concomitant]
     Active Substance: PANTOPRAZOLE SODIUM
     Dosage: UNK
  4. ZEBINIX [Suspect]
     Active Substance: ESLICARBAZEPINE ACETATE
     Indication: PARTIAL SEIZURES
     Dosage: 400 MG, DAILY
     Route: 048
     Dates: start: 20170113, end: 2017
  5. INIPOMP [Concomitant]
     Active Substance: PANTOPRAZOLE SODIUM
     Dosage: 1 DF, QD
  6. SOLUPRED                           /00016201/ [Concomitant]
     Active Substance: PREDNISOLONE
     Indication: BRONCHITIS
     Dosage: UNK
     Route: 048
     Dates: start: 20170131
  7. LIPANTHYL [Concomitant]
     Active Substance: FENOFIBRATE
     Dosage: 1 DF, QD
  8. ZEBINIX [Suspect]
     Active Substance: ESLICARBAZEPINE ACETATE
     Dosage: 400 MG, IN THE EVENING
     Route: 065
     Dates: start: 201702, end: 20170209
  9. ZINNAT                             /00454602/ [Suspect]
     Active Substance: CEFUROXIME SODIUM
     Indication: BRONCHITIS
     Dosage: 250 MG, DAILY
     Route: 048
     Dates: start: 20170131, end: 20170206
  10. ZINNAT                             /00454602/ [Suspect]
     Active Substance: CEFUROXIME SODIUM
     Indication: SINUSITIS
  11. SOLUPRED                           /00016201/ [Concomitant]
     Active Substance: PREDNISOLONE
     Indication: SINUSITIS

REACTIONS (13)
  - Inflammation [Unknown]
  - C-reactive protein increased [Unknown]
  - Rash maculo-papular [Recovered/Resolved]
  - Hyperthermia [Recovered/Resolved]
  - Hyperkalaemia [Unknown]
  - Drug intolerance [Unknown]
  - Off label use [Unknown]
  - Face oedema [Recovered/Resolved]
  - Pruritus generalised [Recovered/Resolved]
  - Lip oedema [Recovered/Resolved]
  - Toxic skin eruption [Recovered/Resolved]
  - Eosinophilia [Recovered/Resolved]
  - Dysuria [Unknown]

NARRATIVE: CASE EVENT DATE: 201702
